FAERS Safety Report 13734215 (Version 1)
Quarter: 2017Q3

REPORT INFORMATION
  Report Type: Spontaneous
  Country: US (occurrence: US)
  Receive Date: 20170708
  Receipt Date: 20170708
  Transmission Date: 20171127
  Serious: No
  Sender: FDA-Public Use
  Company Number: US-009507513-1705USA015487

PATIENT
  Age: 74 Year
  Sex: Female

DRUGS (2)
  1. JANUMET XR [Suspect]
     Active Substance: METFORMIN HYDROCHLORIDE\SITAGLIPTIN PHOSPHATE
     Indication: TYPE 2 DIABETES MELLITUS
     Dosage: 2 TABLETS DAILY
     Route: 048
     Dates: start: 2015
  2. INVOKANA [Concomitant]
     Active Substance: CANAGLIFLOZIN
     Dosage: UNK

REACTIONS (5)
  - Blood glucose increased [Unknown]
  - Drug dose omission [Unknown]
  - Rash [Unknown]
  - Blood glucose fluctuation [Unknown]
  - Product use issue [Unknown]
